FAERS Safety Report 25586893 (Version 1)
Quarter: 2025Q3

REPORT INFORMATION
  Report Type: Spontaneous
  Country: US (occurrence: US)
  Receive Date: 20250721
  Receipt Date: 20250721
  Transmission Date: 20251020
  Serious: No
  Sender: Phathom Pharmaceuticals
  Company Number: US-PHATHOM PHARMACEUTICALS INC.-2025PHT01126

PATIENT
  Age: 73 Year
  Sex: Female

DRUGS (9)
  1. VOQUEZNA [Suspect]
     Active Substance: VONOPRAZAN FUMARATE
     Dosage: 10 MG, 1X/DAY
     Route: 048
     Dates: start: 20250416
  2. TRAMADOL [Concomitant]
     Active Substance: TRAMADOL
  3. VRAYLAR [Concomitant]
     Active Substance: CARIPRAZINE
  4. LUNESTA [Concomitant]
     Active Substance: ESZOPICLONE
  5. POTASSIUM [Concomitant]
     Active Substance: POTASSIUM
  6. PLAVIX [Concomitant]
     Active Substance: CLOPIDOGREL BISULFATE
  7. CITALOPRAM [Concomitant]
     Active Substance: CITALOPRAM
  8. CELEXA [Concomitant]
     Active Substance: CITALOPRAM HYDROBROMIDE
  9. VAYAROL [Concomitant]

REACTIONS (1)
  - Somnolence [Unknown]

NARRATIVE: CASE EVENT DATE: 20250101
